FAERS Safety Report 23617745 (Version 1)
Quarter: 2024Q1

REPORT INFORMATION
  Report Type: Spontaneous
  Country: US (occurrence: US)
  Receive Date: 20240311
  Receipt Date: 20240311
  Transmission Date: 20240410
  Serious: No
  Sender: FDA-Public Use
  Company Number: US-SA-SAC20240307001361

PATIENT
  Age: 14 Year
  Sex: Female
  Weight: 52.8 kg

DRUGS (1)
  1. DUPIXENT [Suspect]
     Active Substance: DUPILUMAB
     Indication: Dermatitis atopic
     Dosage: 200 MG, QOW
     Route: 058
     Dates: start: 20210127

REACTIONS (2)
  - Post procedural haemorrhage [Recovered/Resolved]
  - Wisdom teeth removal [Unknown]

NARRATIVE: CASE EVENT DATE: 20240124
